FAERS Safety Report 11334901 (Version 1)
Quarter: 2015Q3

REPORT INFORMATION
  Report Type: Spontaneous
  Country: US (occurrence: US)
  Receive Date: 20150804
  Receipt Date: 20150804
  Transmission Date: 20151125
  Serious: No
  Sender: FDA-Public Use
  Company Number: US-AMGEN-USASP2015072377

PATIENT
  Age: 23 Year
  Sex: Female

DRUGS (1)
  1. ENBREL [Suspect]
     Active Substance: ETANERCEPT
     Indication: PRODUCT USED FOR UNKNOWN INDICATION
     Dosage: 50 MG, QWK
     Route: 065
     Dates: start: 20150428

REACTIONS (11)
  - Nasal congestion [Not Recovered/Not Resolved]
  - Rhinorrhoea [Not Recovered/Not Resolved]
  - Grip strength decreased [Unknown]
  - Blister [Unknown]
  - Oropharyngeal pain [Not Recovered/Not Resolved]
  - Rash [Recovering/Resolving]
  - Gait disturbance [Unknown]
  - Activities of daily living impaired [Unknown]
  - Sinus disorder [Not Recovered/Not Resolved]
  - Drug dose omission [Unknown]
  - Hypersensitivity [Unknown]

NARRATIVE: CASE EVENT DATE: 2015
